FAERS Safety Report 5588198-3 (Version None)
Quarter: 2008Q1

REPORT INFORMATION
  Report Type: 
  Country: None (occurrence: None)
  Receive Date: 20080109
  Receipt Date: 20080109
  Transmission Date: 20080703
  Serious: Yes (Other)
  Sender: FDA-Public Use
  Company Number: None

PATIENT
  Sex: Female
  Weight: 65.7716 kg

DRUGS (1)
  1. LEVAQUIN [Suspect]
     Indication: BRONCHITIS
     Dosage: 750 MG  DAILY  PO
     Route: 048
     Dates: start: 20070730, end: 20070803

REACTIONS (3)
  - ABASIA [None]
  - TENDON PAIN [None]
  - TENDONITIS [None]
